FAERS Safety Report 7243149-0 (Version None)
Quarter: 2011Q1

REPORT INFORMATION
  Report Type: 
  Country: None (occurrence: None)
  Receive Date: 20110118
  Receipt Date: 20110105
  Transmission Date: 20110831
  Serious: Yes (Other)
  Sender: FDA-Public Use
  Company Number: 2011MA000117

PATIENT
  Age: 70 Year
  Sex: Male

DRUGS (13)
  1. VORICOMAZOLE [Concomitant]
  2. CLARITHROMYCIN [Concomitant]
  3. OMEPRAZOLE [Concomitant]
  4. FEVERALL [Suspect]
     Indication: ANALGESIC THERAPY
     Dosage: 1 GR, IV
     Route: 042
     Dates: start: 20101221, end: 20101223
  5. CYCLOPHOSPHAMIDE [Concomitant]
  6. VINCRISTINE [Concomitant]
  7. MEROPENEM [Concomitant]
  8. PREDNISOLONE [Concomitant]
  9. TAMIFLU [Concomitant]
  10. ALBUTEROL [Concomitant]
  11. DOMPERIDONE [Concomitant]
  12. RITUXIMAB [Concomitant]
  13. GENTAMICIN [Concomitant]

REACTIONS (1)
  - HYPOTENSION [None]
